FAERS Safety Report 23306795 (Version 2)
Quarter: 2024Q1

REPORT INFORMATION
  Report Type: Report from Study
  Country: US (occurrence: US)
  Receive Date: 20231218
  Receipt Date: 20240216
  Transmission Date: 20240410
  Serious: Yes (Other)
  Sender: FDA-Public Use
  Company Number: US-UCBSA-2023058502

PATIENT
  Age: 61 Year
  Sex: Male

DRUGS (1)
  1. BIMEKIZUMAB [Suspect]
     Active Substance: BIMEKIZUMAB
     Indication: Psoriasis
     Dosage: 320 MILLIGRAM, MONTHLY (QM) (EVERY 4 WEEKS)
     Route: 058
     Dates: start: 20231125

REACTIONS (4)
  - Tooth fracture [Recovering/Resolving]
  - Tooth infection [Recovering/Resolving]
  - Oral candidiasis [Recovered/Resolved]
  - Tooth extraction [Recovered/Resolved]

NARRATIVE: CASE EVENT DATE: 20231208
